FAERS Safety Report 13185415 (Version 1)
Quarter: 2017Q1

REPORT INFORMATION
  Report Type: Not Available
  Country: ES (occurrence: ES)
  Receive Date: 20170203
  Receipt Date: 20170203
  Transmission Date: 20170428
  Serious: Yes (Hospitalization)
  Sender: FDA-Public Use
  Company Number: ES-MUNDIPHARMA DS AND PHARMACOVIGILANCE-GBR-2017-0043167

PATIENT
  Age: 77 Year
  Sex: Female
  Weight: 65 kg

DRUGS (2)
  1. TARGIN [Suspect]
     Active Substance: NALOXONE HYDROCHLORIDE\OXYCODONE HYDROCHLORIDE
     Indication: PAIN
     Dosage: 40 MG/20 MG, Q12H
     Route: 048
     Dates: start: 20160127, end: 20160625
  2. FENTANILO /00174601/ [Suspect]
     Active Substance: FENTANYL
     Indication: PAIN
     Dosage: 50 MICROG; TIMES: 1; FREQUENCY: 72 HOURS
     Route: 062
     Dates: start: 20160414, end: 20160712

REACTIONS (2)
  - Dyspnoea [Recovered/Resolved]
  - Disorientation [Recovered/Resolved]

NARRATIVE: CASE EVENT DATE: 20160502
